APPROVED DRUG PRODUCT: METHOCARBAMOL
Active Ingredient: METHOCARBAMOL
Strength: 500MG
Dosage Form/Route: TABLET;ORAL
Application: A084231 | Product #002
Applicant: PURACAP PHARMACEUTICAL LLC
Approved: Approved Prior to Jan 1, 1982 | RLD: No | RS: No | Type: DISCN